FAERS Safety Report 5683442-6 (Version None)
Quarter: 2008Q1

REPORT INFORMATION
  Report Type: 
  Country: None (occurrence: None)
  Receive Date: 20080326
  Receipt Date: 20080314
  Transmission Date: 20080703
  Serious: Yes (Hospitalization)
  Sender: FDA-Public Use
  Company Number: FRPFM-S-20080086

PATIENT
  Sex: Male

DRUGS (3)
  1. NAVELBINE [Suspect]
     Indication: SARCOMA
     Dosage: 47 MG QD IV
     Route: 042
     Dates: start: 20080218, end: 20080218
  2. NAVELBINE [Suspect]
     Indication: SARCOMA
     Dosage: 49 MG QD IV
     Route: 042
     Dates: start: 20080225, end: 20080225
  3. ANTIPROTEASE [Suspect]
     Indication: HIV INFECTION

REACTIONS (3)
  - DRUG INTERACTION [None]
  - FEBRILE BONE MARROW APLASIA [None]
  - FEBRILE NEUTROPENIA [None]
